FAERS Safety Report 9003454 (Version 1)
Quarter: 2013Q1

REPORT INFORMATION
  Report Type: Spontaneous
  Country: US (occurrence: US)
  Receive Date: 20130108
  Receipt Date: 20130108
  Transmission Date: 20140127
  Serious: Yes (Hospitalization, Other)
  Sender: FDA-Public Use
  Company Number: PHEH2013US000499

PATIENT
  Sex: Female

DRUGS (9)
  1. DIOVAN [Suspect]
     Indication: HYPERTENSION
     Dosage: 160 MG, QD
     Route: 048
  2. LOSARTAN [Suspect]
     Indication: HYPERTENSION
     Dosage: 100 MG, QD
     Route: 048
  3. ESCITALOPRAM [Suspect]
     Indication: DEPRESSION
     Dosage: 10 MG, QD
  4. ALPRAZOLAM ER [Suspect]
     Dosage: 1 MG, PRN
  5. ACCUPRIL [Suspect]
     Dosage: 20 MG, QD
     Route: 048
  6. METFORMIN [Concomitant]
     Indication: DIABETES MELLITUS
     Dosage: 1000 MG, QD
     Route: 048
  7. PRAVASTATIN [Concomitant]
     Dosage: 20 MG, QD
  8. ZOLOFT [Concomitant]
     Dosage: UNK UKN, UNK
  9. BYETTA [Concomitant]
     Dosage: UNK UKN, UNK

REACTIONS (10)
  - Heart rate decreased [Unknown]
  - Hyperhidrosis [Unknown]
  - Palpitations [Unknown]
  - Depression [Unknown]
  - Mental impairment [Unknown]
  - Feeling abnormal [Unknown]
  - Anxiety [Unknown]
  - Fatigue [Unknown]
  - Dizziness [Unknown]
  - Cough [Unknown]
